FAERS Safety Report 24022667 (Version 3)
Quarter: 2024Q3

REPORT INFORMATION
  Report Type: Spontaneous
  Country: FR (occurrence: FR)
  Receive Date: 20240627
  Receipt Date: 20240710
  Transmission Date: 20241016
  Serious: No
  Sender: ROCHE
  Company Number: FR-ROCHE-2780322

PATIENT
  Age: 11 Year
  Sex: Male
  Weight: 44.0 kg

DRUGS (1)
  1. ALECENSA [Suspect]
     Active Substance: ALECTINIB HYDROCHLORIDE
     Indication: Non-Hodgkin^s lymphoma recurrent
     Dosage: 600 MG CAPSULE IN MORNING AND EVENING (4 CAPSULES OF 150 MG MORNING AND EVENING FOR 6 MONTHS)
     Route: 048
     Dates: start: 20210303

REACTIONS (2)
  - Weight increased [Unknown]
  - Intentional product use issue [Unknown]
